FAERS Safety Report 9274724 (Version 1)
Quarter: 2013Q2

REPORT INFORMATION
  Report Type: Spontaneous
  Country: US (occurrence: None)
  Receive Date: 20130429
  Receipt Date: 20130429
  Transmission Date: 20140414
  Serious: Yes (Hospitalization, Other)
  Sender: FDA-Public Use
  Company Number: 2013P1004907

PATIENT
  Age: 74 Year
  Sex: Female

DRUGS (10)
  1. ISONIAZID [Suspect]
     Indication: LATENT TUBERCULOSIS
  2. MIRTAZAPINE [Concomitant]
  3. SIMVASTATIN [Concomitant]
  4. TRAMADOL [Concomitant]
  5. RANITIDINE [Concomitant]
  6. COLACE [Concomitant]
  7. SENNA [Concomitant]
  8. FLUTICASONE [Concomitant]
  9. VITAMIN D [Concomitant]
  10. FERRUOUS GLUCONATE [Concomitant]

REACTIONS (1)
  - Pancreatitis [None]
